FAERS Safety Report 8357831-5 (Version None)
Quarter: 2012Q2

REPORT INFORMATION
  Report Type: 
  Country: None (occurrence: None)
  Receive Date: 20120514
  Receipt Date: 20110818
  Transmission Date: 20120825
  Serious: No
  Sender: FDA-Public Use
  Company Number: US-TEVA-2011004360

PATIENT
  Sex: Female
  Weight: 122.58 kg

DRUGS (9)
  1. HYDROCHLOROTHIAZIDE [Concomitant]
  2. ETODOLAC [Concomitant]
  3. KLONOPIN [Concomitant]
  4. NUVIGIL [Suspect]
     Indication: BRADYPHRENIA
     Dosage: 150 MILLIGRAM;
     Route: 048
     Dates: start: 20110817
  5. NUVIGIL [Suspect]
     Dosage: 75 MILLIGRAM;
     Route: 048
     Dates: start: 20110818
  6. REMERON [Concomitant]
     Dates: start: 20110701
  7. AMLODIPINE BESYLATE [Concomitant]
  8. ABILIFY [Concomitant]
     Dates: start: 20110801
  9. FAMOTIDINE [Concomitant]

REACTIONS (4)
  - NAUSEA [None]
  - INSOMNIA [None]
  - DIZZINESS [None]
  - CONFUSIONAL STATE [None]
